FAERS Safety Report 9834029 (Version 1)
Quarter: 2014Q1

REPORT INFORMATION
  Report Type: Spontaneous
  Country: US (occurrence: US)
  Receive Date: 20140122
  Receipt Date: 20140122
  Transmission Date: 20141002
  Serious: Yes (Other)
  Sender: FDA-Public Use
  Company Number: US-ROCHE-1336677

PATIENT
  Age: 35 Year
  Sex: Male

DRUGS (2)
  1. VEMURAFENIB [Suspect]
     Indication: METASTATIC MALIGNANT MELANOMA
     Route: 065
  2. VEMURAFENIB [Suspect]
     Route: 065

REACTIONS (2)
  - Radiation necrosis [Unknown]
  - Vasogenic cerebral oedema [Unknown]
